FAERS Safety Report 20371796 (Version 1)
Quarter: 2022Q1

REPORT INFORMATION
  Report Type: Spontaneous
  Country: US (occurrence: US)
  Receive Date: 20220124
  Receipt Date: 20220124
  Transmission Date: 20220423
  Serious: No
  Sender: FDA-Public Use
  Company Number: US-Millicent Holdings Ltd.-MILL20220046

PATIENT
  Age: 55 Year
  Sex: Female

DRUGS (1)
  1. FEMRING [Suspect]
     Active Substance: ESTRADIOL ACETATE
     Indication: Product used for unknown indication
     Dosage: 0.05 MG/DAY
     Route: 067
     Dates: end: 20220113

REACTIONS (4)
  - Vaginal odour [Recovered/Resolved]
  - Product colour issue [Not Recovered/Not Resolved]
  - Product physical issue [None]
  - Product dose omission issue [None]

NARRATIVE: CASE EVENT DATE: 20220113
